FAERS Safety Report 16285599 (Version 1)
Quarter: 2019Q2

REPORT INFORMATION
  Report Type: Spontaneous
  Country: ES (occurrence: ES)
  Receive Date: 20190508
  Receipt Date: 20190508
  Transmission Date: 20190711
  Serious: Yes (Life-Threatening, Disabling, Other)
  Sender: FDA-Public Use
  Company Number: ES-ROCHE-2311895

PATIENT
  Age: 51 Year
  Sex: Male
  Weight: 72 kg

DRUGS (1)
  1. PEGASYS [Suspect]
     Active Substance: PEGINTERFERON ALFA-2A
     Indication: CHRONIC HEPATITIS C
     Route: 030
     Dates: start: 20120412, end: 20120924

REACTIONS (5)
  - Amnesia [Recovered/Resolved with Sequelae]
  - Disturbance in social behaviour [Recovered/Resolved with Sequelae]
  - Bone decalcification [Recovered/Resolved with Sequelae]
  - Thinking abnormal [Recovered/Resolved with Sequelae]
  - Hypotonia [Recovered/Resolved with Sequelae]

NARRATIVE: CASE EVENT DATE: 20120515
